FAERS Safety Report 9205024 (Version 1)
Quarter: 2013Q2

REPORT INFORMATION
  Report Type: Report from Study
  Country: CA (occurrence: CA)
  Receive Date: 20130402
  Receipt Date: 20130402
  Transmission Date: 20140414
  Serious: Yes (Other)
  Sender: FDA-Public Use
  Company Number: CA-NAPPMUNDI-CAN-2013-0003952

PATIENT
  Sex: Female
  Weight: 67.6 kg

DRUGS (10)
  1. OXYNEO [Suspect]
     Indication: PAIN
     Dosage: 10 MG, Q8H
     Route: 065
  2. OXYCOCET [Concomitant]
     Indication: PAIN
     Dosage: 0.5-1 TABLET, QID PRN
     Route: 065
  3. ROSUVASTATIN [Concomitant]
     Indication: BLOOD CHOLESTEROL
     Dosage: UNK
  4. EZETROL [Concomitant]
     Indication: BLOOD CHOLESTEROL
     Dosage: UNK
     Route: 065
  5. BISOPROLOL [Concomitant]
     Indication: PRODUCT USED FOR UNKNOWN INDICATION
     Dosage: 5 MG, DAILY
     Route: 065
  6. ACTONEL [Concomitant]
     Dosage: 35 MG, WEEKLY
     Route: 065
  7. APO-TRAZODONE [Concomitant]
     Indication: SLEEP DISORDER
     Dosage: 50 MG, PRN
     Route: 065
  8. CYMBALTA [Concomitant]
     Indication: DEPRESSION
     Dosage: 30 MG, UNK
     Route: 065
  9. CLONAZEPAM [Concomitant]
     Indication: PRODUCT USED FOR UNKNOWN INDICATION
     Dosage: 0.5 MG, UNK
  10. TYZAL [Concomitant]
     Indication: HYPERTENSION
     Dosage: UNK
     Route: 065

REACTIONS (1)
  - Condition aggravated [Not Recovered/Not Resolved]
